FAERS Safety Report 4413497-8 (Version None)
Quarter: 2004Q2

REPORT INFORMATION
  Report Type: 
  Country: None (occurrence: None)
  Receive Date: 20040630
  Receipt Date: 20040309
  Transmission Date: 20050107
  Serious: No
  Sender: FDA-Public Use
  Company Number: 04P-163-0252811

PATIENT
  Age: 78 Year
  Sex: Female

DRUGS (8)
  1. HUMIRA [Suspect]
     Indication: RHEUMATOID ARTHRITIS
     Dosage: SEE IMAGE
     Route: 058
     Dates: start: 20040107, end: 20040205
  2. HUMIRA [Suspect]
     Indication: RHEUMATOID ARTHRITIS
     Dosage: SEE IMAGE
     Route: 058
     Dates: start: 20040308
  3. PREDNISONE TAB [Concomitant]
  4. MYSOLINE [Concomitant]
  5. AMLODIPINE BESYLATE [Concomitant]
  6. LEXAPRO [Concomitant]
  7. MULTIVITAMIN [Concomitant]
  8. OCYCOCET [Concomitant]

REACTIONS (1)
  - PRURITUS GENERALISED [None]
